FAERS Safety Report 10346273 (Version 2)
Quarter: 2014Q3

REPORT INFORMATION
  Report Type: Spontaneous
  Country: FR (occurrence: FR)
  Receive Date: 20140728
  Receipt Date: 20140915
  Transmission Date: 20150326
  Serious: No
  Sender: FDA-Public Use
  Company Number: PHHY2014FR091790

PATIENT
  Age: 48 Year
  Sex: Female

DRUGS (2)
  1. LAMISIL [Suspect]
     Active Substance: TERBINAFINE HYDROCHLORIDE
     Indication: ONYCHOMYCOSIS
     Dosage: 1 DF, QD
     Route: 048
     Dates: start: 20140708
  2. LYSANXIA [Concomitant]
     Active Substance: PRAZEPAM
     Dosage: UNK UKN, UNK

REACTIONS (2)
  - Oedema peripheral [Unknown]
  - Lymphoedema [Unknown]

NARRATIVE: CASE EVENT DATE: 20140715
